FAERS Safety Report 13833699 (Version 1)
Quarter: 2017Q3

REPORT INFORMATION
  Report Type: Spontaneous
  Country: US (occurrence: US)
  Receive Date: 20170804
  Receipt Date: 20170804
  Transmission Date: 20171127
  Serious: Yes (Other)
  Sender: FDA-Public Use
  Company Number: US-PFIZER INC-2017332637

PATIENT
  Age: 51 Year
  Sex: Male

DRUGS (2)
  1. CYTARABINE. [Suspect]
     Active Substance: CYTARABINE
     Indication: ACUTE MYELOID LEUKAEMIA
     Dosage: UNK (4 DOSES 7/7-7/1 )
  2. CLOFARABINE. [Suspect]
     Active Substance: CLOFARABINE
     Indication: ACUTE MYELOID LEUKAEMIA
     Dosage: UNK (5 DOSES 7/7-7/12 )

REACTIONS (7)
  - Febrile neutropenia [Unknown]
  - Retinal haemorrhage [Recovering/Resolving]
  - Pyrexia [Unknown]
  - Rash [Recovered/Resolved]
  - Pancytopenia [Unknown]
  - Bacteraemia [Recovered/Resolved]
  - Cerebrovascular accident [Unknown]
